FAERS Safety Report 20510433 (Version 2)
Quarter: 2022Q2

REPORT INFORMATION
  Report Type: Spontaneous
  Country: DK (occurrence: DK)
  Receive Date: 20220224
  Receipt Date: 20220418
  Transmission Date: 20220721
  Serious: Yes (Hospitalization)
  Sender: FDA-Public Use
  Company Number: None

PATIENT
  Age: 50 Year
  Sex: Female
  Weight: 68 kg

DRUGS (9)
  1. ADALIMUMAB [Suspect]
     Active Substance: ADALIMUMAB
     Indication: Psoriasis
     Dosage: STRENGTH: 40MGDOSAGE: 25OCT2021 80MG AND ON 01NOV2021 40MG, HEREAFTER PLANNED 40MG PER 2 WEEKS
     Route: 058
     Dates: start: 20211025, end: 20211101
  2. NASONEX [Concomitant]
     Active Substance: MOMETASONE FUROATE
     Indication: Nasal polyps
     Dosage: UNK
     Dates: start: 20120330
  3. NIZORAL [Concomitant]
     Active Substance: KETOCONAZOLE
     Dosage: UNK
     Dates: start: 20140219
  4. ENSTILAR [Concomitant]
     Active Substance: BETAMETHASONE DIPROPIONATE\CALCIPOTRIENE HYDRATE
     Indication: Psoriasis
     Dosage: UNK
     Dates: start: 20191112
  5. CLINDAMYCIN PHOSPHATE [Concomitant]
     Active Substance: CLINDAMYCIN PHOSPHATE
     Indication: Infection
     Dosage: UNK
     Route: 067
     Dates: start: 20160704
  6. BRICANYL [Concomitant]
     Active Substance: TERBUTALINE SULFATE
     Indication: Asthma
     Dosage: UNK
     Route: 055
     Dates: start: 20150717
  7. ACICLODAN [Concomitant]
     Indication: Herpes virus infection
     Route: 048
  8. PROTOPIC [Concomitant]
     Active Substance: TACROLIMUS
     Indication: Eczema
     Dosage: UNK
     Dates: start: 20181107
  9. DAIVOBET [Concomitant]
     Active Substance: BETAMETHASONE DIPROPIONATE\CALCIPOTRIENE
     Indication: Psoriasis
     Dosage: UNK
     Dates: start: 20130909

REACTIONS (5)
  - Carotid artery dissection [Not Recovered/Not Resolved]
  - Eyelid ptosis [Unknown]
  - Sensory disturbance [Unknown]
  - Horner^s syndrome [Unknown]
  - Ear pain [Unknown]

NARRATIVE: CASE EVENT DATE: 20211101
